FAERS Safety Report 25519156 (Version 5)
Quarter: 2025Q4

REPORT INFORMATION
  Report Type: Spontaneous
  Country: JP (occurrence: JP)
  Receive Date: 20250704
  Receipt Date: 20251110
  Transmission Date: 20260118
  Serious: Yes (Hospitalization, Other)
  Sender: ROCHE
  Company Number: JP-CHUGAI-2025020853

PATIENT
  Age: 51 Year
  Sex: Male
  Weight: 50 kg

DRUGS (1)
  1. HEMLIBRA [Suspect]
     Active Substance: EMICIZUMAB-KXWH
     Indication: Haemophilia A without inhibitors
     Dosage: 150 MILLIGRAM, ONCE/2WEEKS
     Route: 058
     Dates: start: 20200127

REACTIONS (5)
  - Extradural haematoma [Recovered/Resolved with Sequelae]
  - Subdural haematoma [Unknown]
  - Epilepsy [Not Recovered/Not Resolved]
  - Gait disturbance [Recovering/Resolving]
  - Femoral neck fracture [Not Recovered/Not Resolved]

NARRATIVE: CASE EVENT DATE: 20250101
